FAERS Safety Report 13257010 (Version 2)
Quarter: 2017Q4

REPORT INFORMATION
  Report Type: Other
  Country: US (occurrence: US)
  Receive Date: 20170221
  Receipt Date: 20171116
  Transmission Date: 20180320
  Serious: Yes (Hospitalization, Other)
  Sender: FDA-Public Use
  Company Number: US-ACORDA-ACO_133907_2017

PATIENT
  Age: 45 Year
  Sex: Female

DRUGS (4)
  1. AMPYRA [Suspect]
     Active Substance: DALFAMPRIDINE
     Indication: MULTIPLE SCLEROSIS
     Dosage: 10 MG, BID
     Route: 048
  2. OTHER THERAPEUTIC PRODUCTS [Concomitant]
     Active Substance: UNSPECIFIED INGREDIENT
     Indication: MYOCARDIAL INFARCTION
     Dosage: UNK
     Route: 065
  3. MELOXICAM. [Suspect]
     Active Substance: MELOXICAM
     Indication: PRODUCT USED FOR UNKNOWN INDICATION
     Dosage: UNK
     Route: 065
  4. AMPYRA [Suspect]
     Active Substance: DALFAMPRIDINE
     Dosage: 10MG ONE TABLET DAILY
     Route: 048
     Dates: start: 201209

REACTIONS (11)
  - Stress [Unknown]
  - Inappropriate schedule of drug administration [Not Recovered/Not Resolved]
  - Carpal tunnel syndrome [Unknown]
  - Myocardial infarction [Unknown]
  - Angina pectoris [Unknown]
  - Road traffic accident [Unknown]
  - Depression [Unknown]
  - Nausea [Unknown]
  - Vomiting [Unknown]
  - Anger [Unknown]
  - Chest pain [Unknown]

NARRATIVE: CASE EVENT DATE: 201607
